FAERS Safety Report 8384528-8 (Version None)
Quarter: 2012Q2

REPORT INFORMATION
  Report Type: 
  Country: None (occurrence: None)
  Receive Date: 20120524
  Receipt Date: 20120518
  Transmission Date: 20120825
  Serious: Yes (Other)
  Sender: FDA-Public Use
  Company Number: US-ASTRAZENECA-2012SE32329

PATIENT
  Age: 38 Year
  Sex: Female

DRUGS (3)
  1. SYMBICORT [Suspect]
     Indication: ASTHMA
     Dosage: UNKNOWN DOSE TWO TIMES A DAY
     Route: 055
  2. SYMBICORT [Suspect]
     Indication: CHRONIC OBSTRUCTIVE PULMONARY DISEASE
     Dosage: UNKNOWN DOSE TWO TIMES A DAY
     Route: 055
  3. ADVAIR DISKUS 100/50 [Concomitant]

REACTIONS (10)
  - BRONCHIAL SECRETION RETENTION [None]
  - SYNCOPE [None]
  - INTENTIONAL DRUG MISUSE [None]
  - FATIGUE [None]
  - SKIN ODOUR ABNORMAL [None]
  - COUGH [None]
  - BRAIN INJURY [None]
  - ASTHENIA [None]
  - MOBILITY DECREASED [None]
  - RESPIRATORY TRACT INFECTION [None]
